FAERS Safety Report 5389297-1 (Version None)
Quarter: 2007Q3

REPORT INFORMATION
  Report Type: 
  Country: None (occurrence: None)
  Receive Date: 20070713
  Receipt Date: 20070629
  Transmission Date: 20080115
  Serious: Yes (Other)
  Sender: FDA-Public Use
  Company Number: CERZ-11719

PATIENT
  Age: 56 Year
  Sex: Female
  Weight: 55.4 kg

DRUGS (1)
  1. CEREZYME [Suspect]
     Indication: GAUCHER'S DISEASE
     Dosage: 800 UNITS Q2WKS IV
     Route: 042
     Dates: start: 19970630

REACTIONS (3)
  - BILIARY COLIC [None]
  - CONSTIPATION [None]
  - PHARYNGEAL OEDEMA [None]
